FAERS Safety Report 4310845-4 (Version None)
Quarter: 2004Q1

REPORT INFORMATION
  Report Type: 
  Country: None (occurrence: None)
  Receive Date: 20040303
  Receipt Date: 20040225
  Transmission Date: 20041129
  Serious: Yes (Hospitalization)
  Sender: FDA-Public Use
  Company Number: US-JNJFOC-20040206047

PATIENT
  Age: 32 Year
  Sex: Female

DRUGS (4)
  1. DURAGESIC [Suspect]
     Indication: PAIN
     Dosage: 75 UG/HR, 1 IN 72 HOUR, TRANSDERMAL
     Route: 062
     Dates: start: 20040122
  2. UNSPECIFIED PAIN MEDICATION (ANALGESICS) [Concomitant]
  3. DILAUDID [Concomitant]
  4. SOMA (CARISOPROLOL) [Concomitant]

REACTIONS (2)
  - HOSPITALISATION [None]
  - SURGERY [None]
